FAERS Safety Report 9057911 (Version 1)
Quarter: 2013Q1

REPORT INFORMATION
  Report Type: Spontaneous
  Country: US (occurrence: None)
  Receive Date: 20130204
  Receipt Date: 20130204
  Transmission Date: 20140127
  Serious: Yes (Other)
  Sender: FDA-Public Use
  Company Number: None

PATIENT
  Age: 22 Year
  Sex: Female

DRUGS (1)
  1. SUMATRIPTAN [Suspect]
     Dosage: 1 TABLET MAX 2/DAY PO
     Route: 048
     Dates: start: 20130108, end: 20130108

REACTIONS (4)
  - Dizziness [None]
  - Hyperhidrosis [None]
  - Flushing [None]
  - Blood pressure decreased [None]
